FAERS Safety Report 11419604 (Version 1)
Quarter: 2015Q3

REPORT INFORMATION
  Report Type: Report from Study
  Country: US (occurrence: US)
  Receive Date: 20150826
  Receipt Date: 20150826
  Transmission Date: 20151125
  Serious: Yes (Other)
  Sender: FDA-Public Use
  Company Number: US-SA-2015SA126155

PATIENT
  Age: 21 Year
  Sex: Female

DRUGS (4)
  1. RIFAPENTINE [Suspect]
     Active Substance: RIFAPENTINE
     Indication: LATENT TUBERCULOSIS
     Route: 048
  2. ISONIAZID. [Suspect]
     Active Substance: ISONIAZID
     Indication: LATENT TUBERCULOSIS
     Dosage: 15-25 MG/KG
     Route: 048
  3. ISONIAZID. [Suspect]
     Active Substance: ISONIAZID
     Indication: LATENT TUBERCULOSIS
     Dosage: 15-25 MG/KG
     Route: 048
  4. RIFAPENTINE [Suspect]
     Active Substance: RIFAPENTINE
     Indication: LATENT TUBERCULOSIS
     Route: 048

REACTIONS (17)
  - Pyrexia [Recovered/Resolved]
  - Pruritus [Recovered/Resolved]
  - Flushing [Recovered/Resolved]
  - Dyspnoea [Recovered/Resolved]
  - Alanine aminotransferase increased [Recovered/Resolved]
  - Arthralgia [Recovered/Resolved]
  - Aspartate aminotransferase increased [Recovered/Resolved]
  - Fatigue [Recovered/Resolved]
  - Rash [Recovered/Resolved]
  - Headache [Recovered/Resolved]
  - Palpitations [Recovered/Resolved]
  - Myalgia [Recovered/Resolved]
  - Leukopenia [Recovered/Resolved]
  - Erythema [Recovered/Resolved]
  - Thrombocytopenia [Recovered/Resolved]
  - Chills [Recovered/Resolved]
  - Conjunctivitis [Recovered/Resolved]
